FAERS Safety Report 21273129 (Version 1)
Quarter: 2022Q3

REPORT INFORMATION
  Report Type: Spontaneous
  Country: US (occurrence: US)
  Receive Date: 20220831
  Receipt Date: 20220831
  Transmission Date: 20221027
  Serious: No
  Sender: FDA-Public Use
  Company Number: US-ALLERGAN-2136879US

PATIENT
  Sex: Female

DRUGS (1)
  1. SUCRALFATE [Suspect]
     Active Substance: SUCRALFATE
     Indication: Gastrooesophageal reflux disease
     Dosage: UNK

REACTIONS (1)
  - Gastrooesophageal reflux disease [Unknown]
